FAERS Safety Report 6492773-1 (Version None)
Quarter: 2009Q4

REPORT INFORMATION
  Report Type: 
  Country: None (occurrence: None)
  Receive Date: 20091214
  Receipt Date: 20090812
  Transmission Date: 20100525
  Serious: Yes (Hospitalization)
  Sender: FDA-Public Use
  Company Number: JP-PFIZER INC-2009231901

PATIENT
  Age: 33 Year
  Sex: Female
  Weight: 53 kg

DRUGS (10)
  1. SUNITINIB MALATE [Suspect]
     Indication: BREAST CANCER RECURRENT
     Dosage: 37.5 MG, 1X/DAY
     Route: 048
     Dates: start: 20090527
  2. SUNITINIB MALATE [Suspect]
     Dosage: 25 MG, 1X/DAY
     Route: 048
     Dates: start: 20090629
  3. CAPECITABINE [Suspect]
     Indication: BREAST CANCER RECURRENT
     Dosage: 1450 MG, 2X/DAY
     Route: 048
     Dates: start: 20090527
  4. CAPECITABINE [Suspect]
     Dosage: 1110 UNK, 2X/DAY
     Route: 048
     Dates: start: 20090617
  5. URSODEOXYCHOLIC ACID [Concomitant]
     Dosage: UNK
     Route: 048
     Dates: start: 20090513
  6. EPL CAP. [Concomitant]
     Dosage: UNK
     Route: 048
     Dates: start: 20090603
  7. MARZULENE S [Concomitant]
     Dosage: UNK
     Route: 048
     Dates: start: 20090527, end: 20090622
  8. PRIMPERAN TAB [Concomitant]
     Dosage: UNK
     Route: 048
     Dates: start: 20090527
  9. GARASONE [Concomitant]
     Dosage: UNK
     Route: 062
     Dates: end: 20090618
  10. DEPAS [Concomitant]
     Dosage: UNK
     Route: 048

REACTIONS (1)
  - ASCITES [None]
